FAERS Safety Report 10055731 (Version 2)
Quarter: 2014Q2

REPORT INFORMATION
  Report Type: Spontaneous
  Country: IT (occurrence: IT)
  Receive Date: 20140403
  Receipt Date: 20140417
  Transmission Date: 20141212
  Serious: Yes (Hospitalization)
  Sender: FDA-Public Use
  Company Number: IT-RANBAXY-2014RR-79550

PATIENT
  Age: 29 Year
  Sex: Male

DRUGS (1)
  1. AMOXICILLIN [Suspect]
     Indication: UPPER RESPIRATORY TRACT INFECTION
     Dosage: 1 G, COMPLETE
     Route: 048
     Dates: start: 20140205, end: 20140205

REACTIONS (4)
  - Tachycardia [Unknown]
  - Erythema [Unknown]
  - Lip oedema [Unknown]
  - Pruritus [Unknown]
